FAERS Safety Report 4385518-2 (Version None)
Quarter: 2004Q2

REPORT INFORMATION
  Report Type: 
  Country: None (occurrence: None)
  Receive Date: 20040622
  Receipt Date: 20040609
  Transmission Date: 20050107
  Serious: Yes (Disabling)
  Sender: FDA-Public Use
  Company Number: HQWYE445514JUN04

PATIENT
  Age: 48 Year
  Sex: Female
  Weight: 65.83 kg

DRUGS (1)
  1. PREMPRO [Suspect]
     Indication: MENOPAUSAL SYMPTOMS
     Dosage: UNSPECIFIED, ORAL
     Route: 048
     Dates: start: 20010801, end: 20020701

REACTIONS (2)
  - ARTERIAL THROMBOSIS [None]
  - LEG AMPUTATION [None]
